FAERS Safety Report 9159962 (Version 2)
Quarter: 2013Q2

REPORT INFORMATION
  Report Type: Spontaneous
  Country: US (occurrence: None)
  Receive Date: 20130214
  Receipt Date: 20130621
  Transmission Date: 20140414
  Serious: Yes (Hospitalization)
  Sender: FDA-Public Use
  Company Number: ACO_33914_2012

PATIENT
  Age: 71 Year
  Sex: Female

DRUGS (4)
  1. AMPYRA [Suspect]
     Indication: MOBILITY DECREASED
     Dates: start: 201004, end: 201005
  2. AMPYRA [Suspect]
     Indication: GAIT DISTURBANCE
     Dates: start: 201004, end: 201005
  3. BACLOFEN (BACLOFEN) [Concomitant]
  4. VITAMIN D (ERGOCALCIFEROL) [Concomitant]

REACTIONS (4)
  - Supraventricular tachycardia [None]
  - Therapeutic response unexpected [None]
  - Multiple sclerosis relapse [None]
  - Drug ineffective [None]
